FAERS Safety Report 12309016 (Version 1)
Quarter: 2016Q2

REPORT INFORMATION
  Report Type: Spontaneous
  Country: US (occurrence: None)
  Receive Date: 20160426
  Receipt Date: 20160426
  Transmission Date: 20160815
  Serious: No
  Sender: FDA-Public Use
  Company Number: None

PATIENT
  Age: 72 Year
  Sex: Female
  Weight: 72.58 kg

DRUGS (7)
  1. MAGNESIUM [Concomitant]
     Active Substance: MAGNESIUM
  2. RED RICE YEAST [Concomitant]
     Active Substance: DIETARY SUPPLEMENT
  3. CREST PRO-HEALTH (STANNOUS FLUORIDE) [Suspect]
     Active Substance: STANNOUS FLUORIDE
     Indication: DENTAL CARE
     Route: 048
     Dates: start: 20160330, end: 20160415
  4. MULTIVITAMIN [Concomitant]
     Active Substance: VITAMINS
  5. VITAMIN D3 [Concomitant]
     Active Substance: CHOLECALCIFEROL
  6. CALCIUM [Concomitant]
     Active Substance: CALCIUM
  7. VIT B COMPLEX [Concomitant]

REACTIONS (3)
  - Swollen tongue [None]
  - Pain in jaw [None]
  - Lip swelling [None]

NARRATIVE: CASE EVENT DATE: 20160415
